FAERS Safety Report 6250628-1 (Version None)
Quarter: 2009Q2

REPORT INFORMATION
  Report Type: 
  Country: None (occurrence: None)
  Receive Date: 20090626
  Receipt Date: 20090619
  Transmission Date: 20091009
  Serious: Yes (Death)
  Sender: FDA-Public Use
  Company Number: 2009US002487

PATIENT
  Age: 82 Year
  Sex: Female
  Weight: 45.8 kg

DRUGS (1)
  1. AMBISOME [Suspect]
     Indication: CEREBRAL ASPERGILLOSIS
     Dosage: 150 MG, UID/QD, IV DRIP
     Route: 041
     Dates: start: 20090602, end: 20090612

REACTIONS (2)
  - CEREBRAL ASPERGILLOSIS [None]
  - CONDITION AGGRAVATED [None]
